FAERS Safety Report 5527070-1 (Version None)
Quarter: 2007Q4

REPORT INFORMATION
  Report Type: 
  Country: None (occurrence: None)
  Receive Date: 20071127
  Receipt Date: 20071126
  Transmission Date: 20080405
  Serious: Yes (Hospitalization)
  Sender: FDA-Public Use
  Company Number: FR-MERCK-0711FRA00093

PATIENT
  Age: 42 Year
  Sex: Male

DRUGS (4)
  1. INDOCIN [Suspect]
     Indication: ANKYLOSING SPONDYLITIS
     Route: 048
     Dates: end: 20070923
  2. INFLIXIMAB [Suspect]
     Indication: ANKYLOSING SPONDYLITIS
     Route: 041
     Dates: start: 20070926, end: 20070926
  3. ACETAMINOPHEN [Concomitant]
     Route: 048
  4. DEXCHLORPHENIRAMINE MALEATE [Concomitant]
     Indication: PROPHYLAXIS
     Route: 065
     Dates: start: 20070926, end: 20070926

REACTIONS (2)
  - PANCREATITIS [None]
  - RASH [None]
